FAERS Safety Report 18503514 (Version 1)
Quarter: 2020Q4

REPORT INFORMATION
  Report Type: Spontaneous
  Country: US (occurrence: US)
  Receive Date: 20201113
  Receipt Date: 20201113
  Transmission Date: 20210114
  Serious: Yes (Other)
  Sender: FDA-Public Use
  Company Number: US-009507513-2011USA006612

PATIENT
  Sex: Male

DRUGS (4)
  1. PROVENTIL [Suspect]
     Active Substance: ALBUTEROL
     Dosage: 90 MICROGRAM
     Route: 055
     Dates: start: 202010
  2. PROVENTIL [Suspect]
     Active Substance: ALBUTEROL
     Dosage: 90 MICROGRAM
     Route: 055
     Dates: start: 202010
  3. PROVENTIL [Suspect]
     Active Substance: ALBUTEROL
     Dosage: 90 MICROGRAM
     Route: 055
     Dates: start: 202010
  4. PROVENTIL [Suspect]
     Active Substance: ALBUTEROL
     Dosage: 90 MICROGRAM
     Route: 055
     Dates: start: 202010

REACTIONS (7)
  - Wrong technique in device usage process [Unknown]
  - Device difficult to use [Unknown]
  - Product complaint [Unknown]
  - Poor quality device used [Unknown]
  - Product delivery mechanism issue [Unknown]
  - Dementia [Not Recovered/Not Resolved]
  - Macular degeneration [Not Recovered/Not Resolved]

NARRATIVE: CASE EVENT DATE: 202010
